FAERS Safety Report 9779215 (Version 1)
Quarter: 2013Q4

REPORT INFORMATION
  Report Type: Spontaneous
  Country: US (occurrence: US)
  Receive Date: 20131223
  Receipt Date: 20131223
  Transmission Date: 20140711
  Serious: No
  Sender: FDA-Public Use
  Company Number: US-ENDO PHARMACEUTICALS INC.-OPCR20130405

PATIENT
  Age: 36 Year
  Sex: Female

DRUGS (4)
  1. OPANA ER 40MG [Suspect]
     Indication: PAIN
     Route: 048
  2. OPANA ER 40MG [Concomitant]
     Indication: PAIN
     Route: 048
  3. FENTANYL [Concomitant]
     Indication: PRODUCT USED FOR UNKNOWN INDICATION
     Dosage: UNK
  4. SYNTHROID [Concomitant]
     Indication: PRODUCT USED FOR UNKNOWN INDICATION
     Dosage: UNK

REACTIONS (1)
  - Drug screen negative [Not Recovered/Not Resolved]
